FAERS Safety Report 8370824-7 (Version None)
Quarter: 2012Q2

REPORT INFORMATION
  Report Type: 
  Country: None (occurrence: None)
  Receive Date: 20120518
  Receipt Date: 20110728
  Transmission Date: 20120825
  Serious: No
  Sender: FDA-Public Use
  Company Number: US-ASTRAZENECA-2011SE55311

PATIENT
  Age: 71 Year
  Sex: Female

DRUGS (2)
  1. PRILOSEC OTC [Suspect]
     Route: 048
     Dates: start: 20040101
  2. DIAZEPAM [Interacting]
     Route: 065

REACTIONS (4)
  - INCORRECT DRUG ADMINISTRATION DURATION [None]
  - LABELLED DRUG-DRUG INTERACTION MEDICATION ERROR [None]
  - INAPPROPRIATE SCHEDULE OF DRUG ADMINISTRATION [None]
  - DIARRHOEA [None]
